FAERS Safety Report 7419715-6 (Version None)
Quarter: 2011Q2

REPORT INFORMATION
  Report Type: 
  Country: None (occurrence: None)
  Receive Date: 20110418
  Receipt Date: 20110411
  Transmission Date: 20111010
  Serious: Yes (Hospitalization)
  Sender: FDA-Public Use
  Company Number: US-ELI_LILLY_AND_COMPANY-US200908005330

PATIENT
  Sex: Male
  Weight: 167.8 kg

DRUGS (11)
  1. GLYBURIDE [Concomitant]
  2. ASPIRIN [Concomitant]
     Dosage: UNK, QD
     Route: 048
  3. BYETTA [Suspect]
     Dosage: 10 UG, 2/D
     Route: 058
  4. NOVOLOG [Concomitant]
     Indication: TYPE 2 DIABETES MELLITUS
     Dosage: UNK
     Route: 058
  5. BYETTA [Suspect]
     Indication: TYPE 2 DIABETES MELLITUS
     Dosage: 5 UG, 2/D
     Route: 058
  6. METFORMIN HCL [Concomitant]
     Dosage: 500 MG, EACH EVENING
     Route: 048
  7. BYETTA [Suspect]
     Dosage: 10 UG, 2/D
     Route: 058
  8. LEVEMIR [Concomitant]
     Indication: TYPE 2 DIABETES MELLITUS
     Dosage: 10 U, EACH EVENING
     Route: 058
     Dates: start: 20110301
  9. BENAZEPRIL HYDROCHLORIDE [Concomitant]
     Indication: HYPERTENSION
     Dosage: UNK
     Route: 048
  10. DILTIAZEM [Concomitant]
     Indication: HYPERTENSION
     Dosage: UNK
     Route: 048
  11. METFORMIN HCL [Concomitant]
     Indication: TYPE 2 DIABETES MELLITUS
     Dosage: 1000 MG, EACH MORNING
     Route: 048

REACTIONS (10)
  - BLOOD GLUCOSE INCREASED [None]
  - SINUSITIS [None]
  - OFF LABEL USE [None]
  - CYSTITIS [None]
  - URINARY TRACT INFECTION [None]
  - PYREXIA [None]
  - DEHYDRATION [None]
  - DYSURIA [None]
  - WEIGHT DECREASED [None]
  - DRUG INEFFECTIVE [None]
